FAERS Safety Report 22166736 (Version 1)
Quarter: 2023Q2

REPORT INFORMATION
  Report Type: Report from Study
  Country: IT (occurrence: IT)
  Receive Date: 20230403
  Receipt Date: 20230403
  Transmission Date: 20230721
  Serious: Yes (Hospitalization)
  Sender: FDA-Public Use
  Company Number: IT-ABBVIE-22P-083-4448720-00

PATIENT
  Age: 78 Year
  Sex: Male

DRUGS (6)
  1. NAVITOCLAX [Suspect]
     Active Substance: NAVITOCLAX
     Indication: Myelofibrosis
     Route: 048
     Dates: start: 20220207, end: 20220517
  2. ALLOPURINOL [Concomitant]
     Active Substance: ALLOPURINOL
     Indication: Prophylaxis
     Route: 048
     Dates: start: 20190701
  3. METOCLOPRAMIDE HYDROCHLORIDE [Concomitant]
     Active Substance: METOCLOPRAMIDE HYDROCHLORIDE
     Indication: Nausea
     Route: 048
     Dates: start: 20220524
  4. RUXOLITINIB [Suspect]
     Active Substance: RUXOLITINIB
     Indication: Myelofibrosis
     Route: 048
     Dates: start: 20220207, end: 20220626
  5. RIOPAN [Concomitant]
     Indication: Gastritis erosive
     Dosage: TIME INTERVAL: AS NECESSARY
     Route: 048
     Dates: start: 20190308
  6. EXJADE [Concomitant]
     Active Substance: DEFERASIROX
     Indication: Anaemia prophylaxis
     Route: 048
     Dates: start: 20200831

REACTIONS (1)
  - Haematemesis [Recovered/Resolved]

NARRATIVE: CASE EVENT DATE: 20220621
